FAERS Safety Report 11042798 (Version 2)
Quarter: 2015Q2

REPORT INFORMATION
  Report Type: Spontaneous
  Country: BR (occurrence: BR)
  Receive Date: 20150417
  Receipt Date: 20150525
  Transmission Date: 20150821
  Serious: Yes (Other)
  Sender: FDA-Public Use
  Company Number: BR-ROCHE-1429388

PATIENT
  Age: 59 Year
  Sex: Female

DRUGS (3)
  1. ARAVA [Suspect]
     Active Substance: LEFLUNOMIDE
     Indication: PRODUCT USED FOR UNKNOWN INDICATION
     Route: 065
     Dates: end: 201405
  2. ACTEMRA [Suspect]
     Active Substance: TOCILIZUMAB
     Indication: RHEUMATOID ARTHRITIS
     Route: 065
     Dates: start: 2013
  3. DRAMAMINE [Concomitant]
     Active Substance: DIMENHYDRINATE
     Route: 042

REACTIONS (12)
  - Hyponatraemia [Recovered/Resolved]
  - Blood cholesterol increased [Recovered/Resolved]
  - Headache [Recovered/Resolved]
  - Nasopharyngitis [Recovered/Resolved]
  - Oropharyngeal pain [Recovered/Resolved]
  - Sciatica [Recovering/Resolving]
  - Fatigue [Not Recovered/Not Resolved]
  - Blood triglycerides abnormal [Recovered/Resolved]
  - Dizziness [Recovered/Resolved]
  - Vomiting [Recovered/Resolved]
  - Low density lipoprotein increased [Recovered/Resolved]
  - Very low density lipoprotein increased [Recovered/Resolved]

NARRATIVE: CASE EVENT DATE: 201312
